FAERS Safety Report 19570994 (Version 1)
Quarter: 2021Q3

REPORT INFORMATION
  Report Type: Spontaneous
  Country: JP (occurrence: JP)
  Receive Date: 20210716
  Receipt Date: 20210716
  Transmission Date: 20211014
  Serious: Yes (Hospitalization)
  Sender: FDA-Public Use
  Company Number: NVSC2021JP119344

PATIENT
  Age: 49 Year
  Sex: Male

DRUGS (2)
  1. CYCLOSPORINE. [Suspect]
     Active Substance: CYCLOSPORINE
     Indication: CHRONIC GRAFT VERSUS HOST DISEASE IN SKIN
     Dosage: UNK
     Route: 065
  2. PREDNISOLONE. [Suspect]
     Active Substance: PREDNISOLONE
     Indication: CHRONIC GRAFT VERSUS HOST DISEASE IN SKIN
     Dosage: 0.5 MG/KG
     Route: 065

REACTIONS (9)
  - Cellulitis [Recovered/Resolved]
  - Dehydration [Unknown]
  - Pyrexia [Recovering/Resolving]
  - Achromobacter infection [Recovered/Resolved]
  - Erythema [Recovering/Resolving]
  - Pain in extremity [Recovering/Resolving]
  - Peripheral swelling [Recovering/Resolving]
  - Drug ineffective [Recovered/Resolved]
  - Renal failure [Recovered/Resolved]
